FAERS Safety Report 12240689 (Version 13)
Quarter: 2018Q2

REPORT INFORMATION
  Report Type: Report from Study
  Country: CA (occurrence: CA)
  Receive Date: 20160406
  Receipt Date: 20180404
  Transmission Date: 20180711
  Serious: Yes (Other)
  Sender: FDA-Public Use
  Company Number: CA-ROCHE-1188566

PATIENT
  Age: 53 Year
  Sex: Female
  Weight: 97.5 kg

DRUGS (14)
  1. RITUXAN [Suspect]
     Active Substance: RITUXIMAB
     Indication: RHEUMATOID ARTHRITIS
     Dosage: LAST DOSE: 07/APR/2015, 17/APR/2015, 05/JUN/2015
     Route: 042
     Dates: start: 20120627
  2. RITUXAN [Suspect]
     Active Substance: RITUXIMAB
     Route: 042
     Dates: start: 20180320, end: 20180320
  3. ARAVA [Concomitant]
     Active Substance: LEFLUNOMIDE
  4. CELEXA [Concomitant]
     Active Substance: CITALOPRAM HYDROBROMIDE
  5. PREDNISONE. [Concomitant]
     Active Substance: PREDNISONE
  6. OMEGA 3 [Concomitant]
     Active Substance: OMEGA-3 FATTY ACIDS
  7. FOSAVANCE [Concomitant]
     Active Substance: ALENDRONATE SODIUM\CHOLECALCIFEROL
  8. RANITIDINE. [Concomitant]
     Active Substance: RANITIDINE
  9. NASONEX [Concomitant]
     Active Substance: MOMETASONE FUROATE
  10. VITAMIN B12 [Concomitant]
     Active Substance: CYANOCOBALAMIN
  11. BENADRYL [Concomitant]
     Active Substance: DIPHENHYDRAMINE HYDROCHLORIDE
     Indication: THROAT IRRITATION
     Route: 048
     Dates: start: 20140903
  12. DIPHENHYDRAMINE HCL [Concomitant]
     Active Substance: DIPHENHYDRAMINE HYDROCHLORIDE
     Indication: PREMEDICATION
     Route: 048
     Dates: start: 20120627
  13. ACETAMINOPHEN. [Concomitant]
     Active Substance: ACETAMINOPHEN
     Indication: PREMEDICATION
     Route: 048
     Dates: start: 20120627
  14. METHYLPREDNISOLONE. [Concomitant]
     Active Substance: METHYLPREDNISOLONE
     Indication: PREMEDICATION
     Route: 042
     Dates: start: 20120627

REACTIONS (20)
  - Nasopharyngitis [Recovered/Resolved]
  - Fall [Unknown]
  - Liver function test abnormal [Unknown]
  - Sinusitis [Recovering/Resolving]
  - Oxygen saturation decreased [Unknown]
  - Lung disorder [Not Recovered/Not Resolved]
  - Infusion related reaction [Recovered/Resolved]
  - Pyrexia [Unknown]
  - Headache [Not Recovered/Not Resolved]
  - Blood cholesterol increased [Unknown]
  - Cholelithiasis [Unknown]
  - Mass [Not Recovered/Not Resolved]
  - Cough [Recovered/Resolved]
  - Arthralgia [Not Recovered/Not Resolved]
  - Head injury [Unknown]
  - Vulvovaginal mycotic infection [Not Recovered/Not Resolved]
  - Infusion related reaction [Recovered/Resolved]
  - Oropharyngeal pain [Unknown]
  - Ear infection [Not Recovered/Not Resolved]
  - Dyspnoea [Not Recovered/Not Resolved]

NARRATIVE: CASE EVENT DATE: 201208
